FAERS Safety Report 25089448 (Version 2)
Quarter: 2025Q2

REPORT INFORMATION
  Report Type: Report from Study
  Country: CA (occurrence: CA)
  Receive Date: 20250318
  Receipt Date: 20250417
  Transmission Date: 20250717
  Serious: Yes (Hospitalization)
  Sender: DR REDDYS
  Company Number: CA-DRL-USA-CAN/2025/03/003983

PATIENT
  Age: 84 Year
  Sex: Male

DRUGS (1)
  1. ZOLEDRONIC ACID [Suspect]
     Active Substance: ZOLEDRONIC ACID
     Indication: Osteoporosis
     Route: 065
     Dates: start: 20240112

REACTIONS (2)
  - Tooth extraction [Recovering/Resolving]
  - Haemorrhage [Recovering/Resolving]
